FAERS Safety Report 18218257 (Version 1)
Quarter: 2020Q3

REPORT INFORMATION
  Report Type: Spontaneous
  Country: CN (occurrence: CN)
  Receive Date: 20200901
  Receipt Date: 20200901
  Transmission Date: 20201103
  Serious: Yes (Life-Threatening, Other)
  Sender: FDA-Public Use
  Company Number: CN-PFIZER INC-2020335782

PATIENT
  Age: 25 Year
  Sex: Female
  Weight: 46 kg

DRUGS (4)
  1. GLUCOSE [Concomitant]
     Active Substance: DEXTROSE
     Indication: VEHICLE SOLUTION USE
     Dosage: 100 ML, 1X/DAY
     Route: 041
     Dates: start: 20200716, end: 20200716
  2. CARBOPLATIN. [Suspect]
     Active Substance: CARBOPLATIN
     Indication: NEOPLASM MALIGNANT
     Dosage: 0.4 G, 1X/DAY
     Route: 041
     Dates: start: 20200717, end: 20200717
  3. GLUCOSE [Concomitant]
     Active Substance: DEXTROSE
     Dosage: 500 ML, 1X/DAY
     Route: 041
     Dates: start: 20200717, end: 20200717
  4. PHARMORUBICIN [Suspect]
     Active Substance: EPIRUBICIN
     Indication: NEOPLASM MALIGNANT
     Dosage: 126 MG, 1X/DAY
     Route: 041
     Dates: start: 20200716, end: 20200716

REACTIONS (3)
  - Haemorrhage subcutaneous [Unknown]
  - Myelosuppression [Recovered/Resolved]
  - Anaemia [Recovered/Resolved]

NARRATIVE: CASE EVENT DATE: 20200724
